FAERS Safety Report 13418901 (Version 1)
Quarter: 2017Q2

REPORT INFORMATION
  Report Type: Spontaneous
  Country: AU (occurrence: AU)
  Receive Date: 20170407
  Receipt Date: 20170407
  Transmission Date: 20170830
  Serious: Yes (Other)
  Sender: FDA-Public Use
  Company Number: AU-ROCHE-1916632

PATIENT
  Sex: Female
  Weight: 60 kg

DRUGS (5)
  1. ASPIRIN. [Concomitant]
     Active Substance: ASPIRIN
  2. PREDNISOLONE. [Concomitant]
     Active Substance: PREDNISOLONE
  3. TAMIFLU [Suspect]
     Active Substance: OSELTAMIVIR PHOSPHATE
     Indication: PRODUCT USED FOR UNKNOWN INDICATION
     Dosage: FREQUENCY - 1 TIME
     Route: 065
     Dates: start: 20161012, end: 20161016
  4. ATORVASTATIN [Concomitant]
     Active Substance: ATORVASTATIN
  5. PROCHLORPERAZINE. [Concomitant]
     Active Substance: PROCHLORPERAZINE

REACTIONS (1)
  - Bradycardia [Not Recovered/Not Resolved]
